FAERS Safety Report 5627614-5 (Version None)
Quarter: 2008Q1

REPORT INFORMATION
  Report Type: 
  Country: None (occurrence: None)
  Receive Date: 20080215
  Receipt Date: 20080205
  Transmission Date: 20080703
  Serious: Yes (Other)
  Sender: FDA-Public Use
  Company Number: US-BAYER-200813231NA

PATIENT
  Age: 52 Year
  Sex: Male

DRUGS (1)
  1. TRASYLOL [Suspect]
     Indication: MITRAL VALVE REPAIR

REACTIONS (5)
  - EMOTIONAL DISTRESS [None]
  - INJURY [None]
  - RENAL FAILURE [None]
  - RENAL FAILURE ACUTE [None]
  - UNEVALUABLE EVENT [None]
